FAERS Safety Report 6013598-7 (Version None)
Quarter: 2008Q4

REPORT INFORMATION
  Report Type: 
  Country: None (occurrence: None)
  Receive Date: 20081218
  Receipt Date: 20081218
  Transmission Date: 20090506
  Serious: No
  Sender: FDA-Public Use
  Company Number: None

PATIENT
  Age: 76 Year
  Sex: Female

DRUGS (1)
  1. PROPAFENONE HCL [Suspect]
     Dosage: TAKE 3 TIMES A DAY
     Dates: start: 20080823, end: 20080902

REACTIONS (2)
  - ATRIAL FIBRILLATION [None]
  - THERAPEUTIC RESPONSE UNEXPECTED WITH DRUG SUBSTITUTION [None]
